FAERS Safety Report 6860639-0 (Version None)
Quarter: 2010Q3

REPORT INFORMATION
  Report Type: 
  Country: None (occurrence: None)
  Receive Date: 20100720
  Receipt Date: 20100708
  Transmission Date: 20110219
  Serious: Yes (Other)
  Sender: FDA-Public Use
  Company Number: IT-GENZYME-LEUP-1000004

PATIENT

DRUGS (2)
  1. LEUPROLIDE ACETATE [Suspect]
     Indication: LEIOMYOMA
     Dosage: UNK
     Route: 065
  2. LEUPROLIDE ACETATE [Suspect]
     Indication: ANAEMIA

REACTIONS (1)
  - METAPLASIA [None]
